FAERS Safety Report 20101103 (Version 1)
Quarter: 2021Q4

REPORT INFORMATION
  Report Type: Spontaneous
  Country: CN (occurrence: CN)
  Receive Date: 20211123
  Receipt Date: 20211123
  Transmission Date: 20220303
  Serious: Yes (Other)
  Sender: FDA-Public Use
  Company Number: CN-BAXTER-2021BAX036361

PATIENT
  Age: 53 Year
  Sex: Female
  Weight: 47 kg

DRUGS (5)
  1. CYCLOPHOSPHAMIDE [Suspect]
     Active Substance: CYCLOPHOSPHAMIDE
     Indication: Breast cancer female
     Dosage: FIRST CHEMOTHERAPY, ENDOXAN CTX 800 MG + NS 40 ML
     Route: 042
     Dates: start: 20211020, end: 20211020
  2. SODIUM CHLORIDE [Suspect]
     Active Substance: SODIUM CHLORIDE
     Indication: Medication dilution
     Dosage: FIRST CHEMOTHERAPY, ENDOXAN CTX 800 MG + NS 40 ML
     Route: 042
     Dates: start: 20211020, end: 20211020
  3. SODIUM CHLORIDE [Suspect]
     Active Substance: SODIUM CHLORIDE
     Dosage: FIRST CHEMOTHERAPY, PHARMORUBICIN 120 MG + NS 100 ML
     Route: 042
     Dates: start: 20211020, end: 20211020
  4. EPIRUBICIN [Suspect]
     Active Substance: EPIRUBICIN
     Indication: Breast cancer female
     Dosage: FIRST CHEMOTHERAPY, PHARMORUBICIN 120 MG + NS 100 ML
     Route: 042
     Dates: start: 20211020, end: 20211020
  5. ANF-RHO [Concomitant]
     Active Substance: ANF-RHO
     Indication: Prophylaxis
     Route: 058
     Dates: start: 20211021

REACTIONS (2)
  - White blood cell count decreased [Recovered/Resolved]
  - Agranulocytosis [Recovered/Resolved]

NARRATIVE: CASE EVENT DATE: 20211028
